FAERS Safety Report 21328133 (Version 2)
Quarter: 2022Q3

REPORT INFORMATION
  Report Type: Spontaneous
  Country: TR (occurrence: TR)
  Receive Date: 20220913
  Receipt Date: 20220922
  Transmission Date: 20221027
  Serious: Yes (Life-Threatening, Other)
  Sender: FDA-Public Use
  Company Number: TR-AMERICAN REGENT INC-2022002544

PATIENT
  Age: 36 Year
  Sex: Female
  Weight: 52 kg

DRUGS (1)
  1. FERINJECT [Suspect]
     Active Substance: FERRIC CARBOXYMALTOSE
     Indication: Drug intolerance
     Dosage: 1000 MILLIGRAM  (2 VIALS OF 500 MG/10ML)
     Route: 042
     Dates: start: 20220426, end: 20220426

REACTIONS (2)
  - Maternal exposure during pregnancy [Recovered/Resolved]
  - Hypersensitivity [Recovered/Resolved]

NARRATIVE: CASE EVENT DATE: 20220426
